FAERS Safety Report 13248299 (Version 1)
Quarter: 2017Q1

REPORT INFORMATION
  Report Type: Spontaneous
  Country: US (occurrence: US)
  Receive Date: 20170218
  Receipt Date: 20170218
  Transmission Date: 20170428
  Serious: No
  Sender: FDA-Public Use
  Company Number: US-ALLERGAN-1600492US

PATIENT
  Age: 57 Year
  Sex: Female
  Weight: 61.22 kg

DRUGS (1)
  1. RESTASIS [Suspect]
     Active Substance: CYCLOSPORINE
     Indication: LACRIMATION INCREASED
     Dosage: 2 GTT, QD
     Route: 047
     Dates: start: 201511, end: 201511

REACTIONS (4)
  - Inappropriate schedule of drug administration [Unknown]
  - Rash [Recovered/Resolved]
  - Eye swelling [Recovered/Resolved]
  - Off label use [Unknown]

NARRATIVE: CASE EVENT DATE: 201511
